FAERS Safety Report 23419640 (Version 1)
Quarter: 2024Q1

REPORT INFORMATION
  Report Type: Spontaneous
  Country: US (occurrence: US)
  Receive Date: 20240119
  Receipt Date: 20240119
  Transmission Date: 20240409
  Serious: No
  Sender: FDA-Public Use
  Company Number: US-002147023-NVSC2023US189248

PATIENT
  Sex: Male

DRUGS (1)
  1. CIPRODEX [Suspect]
     Active Substance: CIPROFLOXACIN HYDROCHLORIDE\DEXAMETHASONE
     Indication: Ear infection
     Dosage: 25 DRP (ROA: EAR)
     Route: 065

REACTIONS (2)
  - Product use complaint [Unknown]
  - Accidental overdose [Unknown]
